FAERS Safety Report 7424511-X (Version None)
Quarter: 2011Q2

REPORT INFORMATION
  Report Type: 
  Country: None (occurrence: None)
  Receive Date: 20110419
  Receipt Date: 20110407
  Transmission Date: 20111010
  Serious: Yes (Hospitalization)
  Sender: FDA-Public Use
  Company Number: US-AMGEN-USASP2011018514

PATIENT
  Age: 56 Year
  Sex: Female

DRUGS (1)
  1. ENBREL [Suspect]
     Indication: RHEUMATOID ARTHRITIS
     Dosage: 50 MG, QWK
     Dates: start: 19990301, end: 20101101

REACTIONS (10)
  - HYPERSENSITIVITY [None]
  - ANAEMIA [None]
  - INFLUENZA [None]
  - URINARY TRACT INFECTION [None]
  - RENAL FAILURE ACUTE [None]
  - OROPHARYNGEAL PAIN [None]
  - VOMITING [None]
  - NAUSEA [None]
  - DEHYDRATION [None]
  - SEPSIS [None]
